FAERS Safety Report 20458524 (Version 5)
Quarter: 2024Q2

REPORT INFORMATION
  Report Type: Report from Study
  Country: KR (occurrence: KR)
  Receive Date: 20220211
  Receipt Date: 20240419
  Transmission Date: 20240715
  Serious: Yes (Hospitalization)
  Sender: FDA-Public Use
  Company Number: KR-ABBVIE-22K-090-4273859-00

PATIENT
  Age: 55 Year
  Sex: Female
  Weight: 54 kg

DRUGS (6)
  1. RINVOQ [Suspect]
     Active Substance: UPADACITINIB
     Indication: Rheumatoid arthritis
     Dosage: FORM STRENGTH: 15 MILLIGRAM
     Route: 048
     Dates: start: 20210706, end: 20220104
  2. RINVOQ [Suspect]
     Active Substance: UPADACITINIB
     Indication: Rheumatoid arthritis
     Dosage: FORM STRENGTH: 15 MILLIGRAM
     Route: 048
     Dates: start: 20220127
  3. ACLOFEN [Concomitant]
     Indication: Rheumatoid arthritis
     Dosage: TAB 100MG?FREQUENCY TEXT: PRN
     Dates: start: 20191120
  4. COMOZOL [Concomitant]
     Indication: Tinea versicolour
     Dosage: 1 FTU?15G
     Route: 062
     Dates: start: 20210928
  5. ARAVA [Concomitant]
     Active Substance: LEFLUNOMIDE
     Indication: Rheumatoid arthritis
     Dates: start: 20211223
  6. ITRA [Concomitant]
     Indication: Tinea versicolour
     Dosage: TAB 100MG
     Route: 048
     Dates: start: 20210928

REACTIONS (1)
  - SARS-CoV-2 test positive [Recovered/Resolved]

NARRATIVE: CASE EVENT DATE: 20220104
